FAERS Safety Report 8956257 (Version 1)
Quarter: 2012Q4

REPORT INFORMATION
  Report Type: 
  Country: JP (occurrence: JP)
  Receive Date: 20121210
  Receipt Date: 20121210
  Transmission Date: 20130627
  Serious: Yes (Hospitalization)
  Sender: FDA-Public Use
  Company Number: JP-ASTELLAS-2012JP011367

PATIENT
  Age: 73 Year
  Sex: Male

DRUGS (4)
  1. VESICARE [Suspect]
     Indication: HYPERTONIC BLADDER
     Dosage: 2.5 mg, UID/QD
     Route: 048
     Dates: start: 20121017, end: 20121202
  2. DIOVAN [Suspect]
     Dosage: 40 mg, Unknown/D
     Route: 048
     Dates: start: 201110, end: 20121202
  3. ARICEPT [Suspect]
     Dosage: 3 mg, Unknown/D
     Route: 048
     Dates: start: 20121105, end: 20121202
  4. HERBAL MEDICINES [Suspect]
     Dosage: UNK
     Route: 048
     Dates: start: 20121004, end: 20121202

REACTIONS (1)
  - Interstitial lung disease [Recovering/Resolving]
